FAERS Safety Report 11505899 (Version 1)
Quarter: 2015Q3

REPORT INFORMATION
  Report Type: Spontaneous
  Country: US (occurrence: US)
  Receive Date: 20150915
  Receipt Date: 20150915
  Transmission Date: 20151125
  Serious: No
  Sender: FDA-Public Use
  Company Number: US-ROCHE-665146

PATIENT
  Age: 56 Year
  Sex: Male
  Weight: 86.2 kg

DRUGS (3)
  1. PEGASYS [Suspect]
     Active Substance: PEGINTERFERON ALFA-2A
     Indication: HEPATITIS C
     Dosage: RECEIVED FOR 8-9 MONTHS
     Route: 058
  2. INTERFERON ALFA-2A [Suspect]
     Active Substance: INTERFERON ALFA-2A
     Indication: PRODUCT USED FOR UNKNOWN INDICATION
     Dosage: START DATE: 2011
     Route: 065
  3. RIBAVIRIN. [Suspect]
     Active Substance: RIBAVIRIN
     Indication: HEPATITIS C
     Dosage: RECEIVED FOR 8-9 MONTHS
     Route: 048

REACTIONS (3)
  - Nervousness [Unknown]
  - Fatigue [Unknown]
  - No therapeutic response [Unknown]

NARRATIVE: CASE EVENT DATE: 20060101
